FAERS Safety Report 23365322 (Version 2)
Quarter: 2024Q1

REPORT INFORMATION
  Report Type: Report from Study
  Country: FR (occurrence: FR)
  Receive Date: 20240104
  Receipt Date: 20240205
  Transmission Date: 20240410
  Serious: Yes (Other)
  Sender: FDA-Public Use
  Company Number: FR-ASTELLAS-2024US000160

PATIENT
  Age: 77 Year
  Sex: Male

DRUGS (1)
  1. ENFORTUMAB VEDOTIN [Suspect]
     Active Substance: ENFORTUMAB VEDOTIN
     Indication: Transitional cell carcinoma metastatic
     Dosage: UNK UNK, UNKNOWN FREQ.
     Route: 065
     Dates: end: 202310

REACTIONS (6)
  - Hepatitis [Unknown]
  - Cholestasis [Unknown]
  - Hyperbilirubinaemia [Unknown]
  - Jaundice [Unknown]
  - Asthenia [Unknown]
  - Pyrexia [Unknown]
